FAERS Safety Report 11694542 (Version 3)
Quarter: 2015Q4

REPORT INFORMATION
  Report Type: Report from Study
  Country: DE (occurrence: DE)
  Receive Date: 20151103
  Receipt Date: 20151118
  Transmission Date: 20160304
  Serious: Yes (Other)
  Sender: FDA-Public Use
  Company Number: DE-BAYER-2015-454033

PATIENT
  Age: 77 Year
  Sex: Male
  Weight: 79 kg

DRUGS (15)
  1. XOFIGO [Suspect]
     Active Substance: RADIUM RA-223 DICHLORIDE
     Indication: PROSTATE CANCER STAGE IV
     Dosage: 3.9 MBQ, ONCE
     Route: 042
     Dates: start: 20150803, end: 20150803
  2. TRENANTONE [Concomitant]
     Active Substance: LEUPROLIDE ACETATE
     Dosage: 11,25 MG
     Dates: start: 20141201
  3. TILIDIN [Concomitant]
     Active Substance: NALOXONE HYDROCHLORIDE\TILIDINE HYDROCHLORIDE
     Dosage: 10 MG, BID
     Route: 048
     Dates: start: 20150907, end: 20150924
  4. XOFIGO [Suspect]
     Active Substance: RADIUM RA-223 DICHLORIDE
     Indication: PROSTATE CANCER STAGE IV
     Dosage: 3.8 MBQ, ONCE
     Route: 042
     Dates: start: 20150928, end: 20150928
  5. XGEVA [Concomitant]
     Active Substance: DENOSUMAB
     Dosage: 120 MG
     Dates: start: 20141201
  6. TARGIN [Concomitant]
     Active Substance: NALOXONE HYDROCHLORIDE\OXYCODONE HYDROCHLORIDE
     Dosage: 10 MG, BID
     Route: 048
     Dates: start: 20151030
  7. CALCIUM [CALCIUM] [Concomitant]
     Active Substance: CALCIUM
     Dosage: TOTAL DAILY DOSE 500 MG
     Dates: start: 20141101
  8. VOLTAREN [Concomitant]
     Active Substance: DICLOFENAC SODIUM
     Indication: BONE PAIN
     Dosage: TOTAL DAILY DOSE 75 MG
     Dates: start: 20150825
  9. BICALUTAMIDE. [Concomitant]
     Active Substance: BICALUTAMIDE
     Dosage: 50 MG DAILY
     Dates: start: 20141201
  10. OXYGESIC [Concomitant]
     Active Substance: OXYCODONE
     Dosage: 10 MG, PRN
     Route: 048
     Dates: start: 20150907, end: 20150924
  11. PREDNISON [Concomitant]
     Active Substance: PREDNISONE
  12. OXYCODONE [Concomitant]
     Active Substance: OXYCODONE
     Dosage: 10 MG, PRN
     Route: 048
     Dates: start: 20151030
  13. XOFIGO [Suspect]
     Active Substance: RADIUM RA-223 DICHLORIDE
     Indication: METASTASES TO BONE
     Dosage: 3.9 MBQ, ONCE
     Route: 042
     Dates: start: 20150825, end: 20150825
  14. NOVALGIN [Concomitant]
     Active Substance: METAMIZOLE SODIUM
     Indication: HEADACHE
     Dosage: TOTAL DAILY DOSE 6 X 500 MG
     Dates: start: 20150825
  15. CORTISON [Concomitant]
     Active Substance: CORTISONE ACETATE
     Dosage: 4 MG, QD
     Dates: start: 20151102

REACTIONS (1)
  - Metastases to soft tissue [None]

NARRATIVE: CASE EVENT DATE: 20151021
